FAERS Safety Report 17789520 (Version 7)
Quarter: 2021Q2

REPORT INFORMATION
  Report Type: Spontaneous
  Country: JP (occurrence: JP)
  Receive Date: 20200515
  Receipt Date: 20210601
  Transmission Date: 20210716
  Serious: Yes (Hospitalization)
  Sender: FDA-Public Use
  Company Number: JP-AMGEN-JPNSP2020075276

PATIENT
  Age: 69 Year
  Sex: Male
  Weight: 70.7 kg

DRUGS (6)
  1. ROCALTROL [Concomitant]
     Active Substance: CALCITRIOL
     Dosage: 0.25 MICROGRAM, QD
     Route: 048
  2. PARSABIV [Suspect]
     Active Substance: ETELCALCETIDE HYDROCHLORIDE
     Dosage: 2.5 MILLIGRAM, Q56H
     Route: 010
     Dates: start: 20200123
  3. PARSABIV [Suspect]
     Active Substance: ETELCALCETIDE HYDROCHLORIDE
     Indication: HYPERPARATHYROIDISM SECONDARY
     Dosage: 5 MILLIGRAM, Q56H
     Route: 010
     Dates: start: 20191107, end: 20200121
  4. RIONA [Concomitant]
     Active Substance: FERRIC CITRATE ANHYDROUS
     Dosage: 750 MILLIGRAM, QD
     Route: 048
     Dates: end: 20191219
  5. MAXACALCITOL [Concomitant]
     Active Substance: MAXACALCITOL
     Dosage: 5 MICROGRAM, Q56H
     Route: 010
     Dates: start: 20200123
  6. P?TOL [SUCROFERRIC OXYHYDROXIDE] [Concomitant]
     Active Substance: SUCROFERRIC OXYHYDROXIDE
     Dosage: 750 MILLIGRAM, QD
     Route: 048
     Dates: start: 20190905

REACTIONS (3)
  - Road traffic accident [Unknown]
  - Rib fracture [Recovered/Resolved]
  - Clavicle fracture [Recovered/Resolved]

NARRATIVE: CASE EVENT DATE: 20200427
